FAERS Safety Report 8267891-8 (Version None)
Quarter: 2012Q2

REPORT INFORMATION
  Report Type: 
  Country: None (occurrence: None)
  Receive Date: 20120409
  Receipt Date: 20120328
  Transmission Date: 20120825
  Serious: Yes (Hospitalization, Other)
  Sender: FDA-Public Use
  Company Number: BR-BRISTOL-MYERS SQUIBB COMPANY-16496168

PATIENT
  Age: 69 Year
  Sex: Female
  Weight: 60 kg

DRUGS (11)
  1. FUROSEMIDE [Concomitant]
  2. APRESOLINE [Concomitant]
  3. NORIPURUM [Concomitant]
  4. SOMALGIN CARDIO [Concomitant]
  5. SIMVASTATIN [Concomitant]
  6. METHYLDOPA [Concomitant]
  7. ONGLYZA [Suspect]
     Indication: DIABETES MELLITUS
     Route: 048
  8. OMEPRAZOLE [Concomitant]
  9. RASILEZ [Concomitant]
  10. DIAMOX [Suspect]
  11. METFORMIN HCL [Concomitant]

REACTIONS (2)
  - BLINDNESS [None]
  - DECREASED APPETITE [None]
